FAERS Safety Report 8106334-1 (Version None)
Quarter: 2012Q1

REPORT INFORMATION
  Report Type: 
  Country: None (occurrence: None)
  Receive Date: 20120202
  Receipt Date: 20120126
  Transmission Date: 20120608
  Serious: Yes (Disabling, Other)
  Sender: FDA-Public Use
  Company Number: JP-SANOFI-AVENTIS-2012SA006056

PATIENT
  Age: 75 Year
  Sex: Male

DRUGS (1)
  1. GLYBURIDE [Suspect]
     Route: 065
     Dates: start: 20060201, end: 20090701

REACTIONS (2)
  - HYPOGLYCAEMIA [None]
  - NERVOUS SYSTEM DISORDER [None]
